FAERS Safety Report 17370993 (Version 1)
Quarter: 2020Q1

REPORT INFORMATION
  Report Type: Spontaneous
  Country: SE (occurrence: SE)
  Receive Date: 20200205
  Receipt Date: 20200205
  Transmission Date: 20200409
  Serious: Yes (Other)
  Sender: FDA-Public Use
  Company Number: SE-MYLANLABS-2020M1012875

PATIENT
  Sex: Male

DRUGS (7)
  1. ELIQUIS [Suspect]
     Active Substance: APIXABAN
     Indication: THROMBOSIS
     Dosage: BID (TOOK ONE-THIRD TABLET OF A TABLET AND HALF TABLET AT 18:00),
     Route: 048
     Dates: start: 20190814
  2. ELIQUIS [Suspect]
     Active Substance: APIXABAN
     Dosage: 5 MILLIGRAM, BID
     Route: 048
     Dates: start: 20190812
  3. SERENOA REPENS [Concomitant]
     Active Substance: SERENOA REPENS WHOLE
     Indication: PRODUCT USED FOR UNKNOWN INDICATION
     Dosage: UNK
     Route: 065
  4. SERENOA REPENS FRUIT EXTRACT [Concomitant]
     Indication: PRODUCT USED FOR UNKNOWN INDICATION
     Dosage: UNK
     Route: 065
  5. LOSARTAN. [Suspect]
     Active Substance: LOSARTAN
     Indication: PRODUCT USED FOR UNKNOWN INDICATION
     Dosage: UNK
     Route: 065
  6. ELIQUIS [Suspect]
     Active Substance: APIXABAN
     Dosage: 5 MILLIGRAM, BID
     Route: 048
     Dates: start: 20190818
  7. ELIQUIS [Suspect]
     Active Substance: APIXABAN
     Dosage: BID (STARTED TO TAKE HALF A TABLET )
     Route: 048
     Dates: start: 20190816

REACTIONS (7)
  - Dyspnoea [Unknown]
  - Myalgia [Unknown]
  - Cholecystitis [Recovered/Resolved]
  - Rash [Unknown]
  - Blood pressure fluctuation [Unknown]
  - Intentional product misuse [Unknown]
  - Dizziness [Unknown]

NARRATIVE: CASE EVENT DATE: 20190826
